FAERS Safety Report 14666629 (Version 1)
Quarter: 2018Q1

REPORT INFORMATION
  Report Type: Spontaneous
  Country: FR (occurrence: FR)
  Receive Date: 20180322
  Receipt Date: 20180322
  Transmission Date: 20180509
  Serious: Yes (Other)
  Sender: FDA-Public Use
  Company Number: FR-MERCK KGAA-2044252

PATIENT
  Age: 57 Year
  Sex: Female

DRUGS (1)
  1. NOVOTHYROX [Suspect]
     Active Substance: LEVOTHYROXINE SODIUM
     Indication: AUTOIMMUNE THYROIDITIS

REACTIONS (26)
  - Loss of personal independence in daily activities [None]
  - Memory impairment [None]
  - Myalgia [None]
  - Social avoidant behaviour [None]
  - Muscle spasms [None]
  - Mood swings [None]
  - Chest pain [None]
  - Depression [None]
  - Gait disturbance [None]
  - Impaired driving ability [None]
  - Mental disorder [None]
  - Personal relationship issue [None]
  - Fatigue [None]
  - Gastrointestinal disorder [None]
  - Heart rate decreased [None]
  - Agitation [None]
  - Hypotension [None]
  - Weight increased [None]
  - Communication disorder [None]
  - Sleep disorder [None]
  - Mobility decreased [None]
  - Disturbance in attention [None]
  - Headache [None]
  - Dizziness [None]
  - Pain in jaw [None]
  - Malaise [None]

NARRATIVE: CASE EVENT DATE: 201704
